FAERS Safety Report 15780484 (Version 1)
Quarter: 2019Q1

REPORT INFORMATION
  Report Type: Spontaneous
  Country: GB (occurrence: GB)
  Receive Date: 20190102
  Receipt Date: 20190102
  Transmission Date: 20190417
  Serious: Yes (Other)
  Sender: FDA-Public Use
  Company Number: GB-TEVA-2018-GB-994135

PATIENT
  Age: 28 Year
  Sex: Female

DRUGS (11)
  1. ARIPIPRAZOLE. [Concomitant]
     Active Substance: ARIPIPRAZOLE
  2. MIRTAZAPINE. [Suspect]
     Active Substance: MIRTAZAPINE
     Indication: ANTIDEPRESSANT THERAPY
     Dosage: 15 MILLIGRAM DAILY; AT NIGHT
     Route: 048
     Dates: end: 20180901
  3. TENOFOVIR DISOPROXIL [Concomitant]
     Active Substance: TENOFOVIR DISOPROXIL
  4. ADCAL-D3 [Concomitant]
     Active Substance: CALCIUM CARBONATE\CHOLECALCIFEROL
  5. PREDNISOLONE. [Concomitant]
     Active Substance: PREDNISOLONE
  6. OMEPRAZOLE SODIUM [Concomitant]
     Active Substance: OMEPRAZOLE SODIUM
  7. PARACETAMOL [Concomitant]
     Active Substance: ACETAMINOPHEN
  8. FOLIC ACID. [Concomitant]
     Active Substance: FOLIC ACID
  9. VEDOLIZUMAB [Concomitant]
     Active Substance: VEDOLIZUMAB
  10. SERTRALINE [Concomitant]
     Active Substance: SERTRALINE HYDROCHLORIDE
  11. CODEINE [Concomitant]
     Active Substance: CODEINE

REACTIONS (2)
  - Somnolence [Recovered/Resolved]
  - Crohn^s disease [Recovered/Resolved]
